FAERS Safety Report 8140455-2 (Version None)
Quarter: 2012Q1

REPORT INFORMATION
  Report Type: 
  Country: None (occurrence: None)
  Receive Date: 20120216
  Receipt Date: 20120213
  Transmission Date: 20120608
  Serious: Yes (Hospitalization)
  Sender: FDA-Public Use
  Company Number: ES-PFIZER INC-2012038042

PATIENT
  Age: 25 Year
  Sex: Female

DRUGS (7)
  1. OMEPRAZOLE [Concomitant]
     Dosage: 20 MG, 1X/DAY
     Route: 048
     Dates: start: 20111104, end: 20111114
  2. VALIUM [Concomitant]
     Dosage: 5 MG, 1X/DAY
     Route: 042
     Dates: start: 20111104, end: 20111114
  3. PHENYTOIN SODIUM [Suspect]
     Indication: STATUS EPILEPTICUS
     Dosage: 1300 MG, UNK
     Route: 048
     Dates: start: 20111104, end: 20111110
  4. NOLOTIL /SPA/ [Concomitant]
     Dosage: 2 G, 3X/DAY
     Route: 042
     Dates: start: 20111104, end: 20111114
  5. ENOXAPARIN SODIUM [Concomitant]
     Dosage: 40 MG, 1X/DAY
     Route: 058
     Dates: start: 20111101, end: 20111111
  6. KEPPRA [Concomitant]
     Indication: STATUS EPILEPTICUS
     Dosage: 0.5 G, 2X/DAY
     Route: 048
     Dates: start: 20111101, end: 20111114
  7. LAMICTAL [Concomitant]
     Indication: STATUS EPILEPTICUS
     Dosage: 25 MG, 1X/DAY
     Route: 048
     Dates: start: 20111101, end: 20111114

REACTIONS (2)
  - NAUSEA [None]
  - GAIT DISTURBANCE [None]
